FAERS Safety Report 6348697-3 (Version None)
Quarter: 2009Q3

REPORT INFORMATION
  Report Type: 
  Country: None (occurrence: None)
  Receive Date: 20090908
  Receipt Date: 20090826
  Transmission Date: 20100115
  Serious: Yes (Death, Hospitalization)
  Sender: FDA-Public Use
  Company Number: AUR-APU-2009-00558

PATIENT
  Age: 1 Day
  Sex: Male

DRUGS (12)
  1. ZIDOVUDINE [Suspect]
     Indication: HUMAN IMMUNODEFICIENCY VIRUS TRANSMISSION
     Dosage: 4MG/KG - Q12HOURS -
  2. ZIDOVUDINE [Suspect]
     Indication: PROPHYLAXIS
     Dosage: 4MG/KG - Q12HOURS -
  3. NEVIRAPINE [Suspect]
     Indication: HUMAN IMMUNODEFICIENCY VIRUS TRANSMISSION
     Dosage: 2MG/KG - X1 -
  4. NEVIRAPINE [Suspect]
     Indication: PROPHYLAXIS
     Dosage: 2MG/KG - X1 -
  5. TRUVADA [Suspect]
     Indication: HUMAN IMMUNODEFICIENCY VIRUS TRANSMISSION
     Dosage: X1
  6. TRUVADA [Suspect]
     Indication: PROPHYLAXIS
     Dosage: X1
  7. NEVIRAPINE [Suspect]
     Indication: HUMAN IMMUNODEFICIENCY VIRUS TRANSMISSION
     Dosage: 200MG - X1 - TRANSPLACENTALLY
     Route: 064
  8. NEVIRAPINE [Suspect]
     Indication: PROPHYLAXIS
     Dosage: 200MG - X1 - TRANSPLACENTALLY
     Route: 064
  9. ZIDOVUDINE [Suspect]
     Indication: HUMAN IMMUNODEFICIENCY VIRUS TRANSMISSION
     Dosage: 300MG - BID - TRANSPLACENTALLY
     Route: 064
  10. ZIDOVUDINE [Suspect]
     Indication: PROPHYLAXIS
     Dosage: 300MG - BID - TRANSPLACENTALLY
     Route: 064
  11. TENOFOVIR DISOPROXIL FUMARATE [Suspect]
     Indication: HUMAN IMMUNODEFICIENCY VIRUS TRANSMISSION
     Dosage: 2 TABLETS - X1 - TRANSPLACENTALLY
     Route: 064
  12. TENOFOVIR DISOPROXIL FUMARATE [Suspect]
     Indication: PROPHYLAXIS
     Dosage: 2 TABLETS - X1 - TRANSPLACENTALLY
     Route: 064

REACTIONS (6)
  - CAESAREAN SECTION [None]
  - LARYNGOMALACIA [None]
  - MATERNAL DRUGS AFFECTING FOETUS [None]
  - NEONATAL DISORDER [None]
  - NEONATAL RESPIRATORY DISTRESS SYNDROME [None]
  - NEUROLOGICAL SYMPTOM [None]
